FAERS Safety Report 10405610 (Version 1)
Quarter: 2014Q3

REPORT INFORMATION
  Report Type: Spontaneous
  Country: US (occurrence: None)
  Receive Date: 20140822
  Receipt Date: 20140822
  Transmission Date: 20150326
  Serious: Yes (Hospitalization)
  Sender: FDA-Public Use
  Company Number: None

PATIENT
  Age: 28 Year
  Sex: Female
  Weight: 105.3 kg

DRUGS (1)
  1. CISPLATIN. [Suspect]
     Active Substance: CISPLATIN

REACTIONS (12)
  - Candida infection [None]
  - Clostridium difficile colitis [None]
  - Mucosal inflammation [None]
  - Pain [None]
  - Dehydration [None]
  - Dysphagia [None]
  - Abdominal pain [None]
  - Gastroenteritis viral [None]
  - Nausea [None]
  - Vomiting [None]
  - Malnutrition [None]
  - Pharyngitis [None]

NARRATIVE: CASE EVENT DATE: 20140628
